FAERS Safety Report 18040918 (Version 2)
Quarter: 2020Q4

REPORT INFORMATION
  Report Type: Report from Study
  Country: None (occurrence: GB)
  Receive Date: 20200717
  Receipt Date: 20201002
  Transmission Date: 20210113
  Serious: Yes (Hospitalization)
  Sender: FDA-Public Use
  Company Number: GB-ABBVIE-20K-167-3484377-00

PATIENT
  Age: 54 Year
  Sex: Male
  Weight: 94.2 kg

DRUGS (5)
  1. EPILIM [Concomitant]
     Active Substance: VALPROATE SODIUM
     Indication: EPILEPSY
     Route: 048
  2. SKYRIZI [Suspect]
     Active Substance: RISANKIZUMAB-RZAA
     Indication: PSORIASIS
     Route: 058
     Dates: start: 20191231
  3. CYCLOSPORINE. [Concomitant]
     Active Substance: CYCLOSPORINE
     Indication: PRODUCT USED FOR UNKNOWN INDICATION
  4. SODIUM VALPROATE [Concomitant]
     Active Substance: VALPROATE SODIUM
     Indication: PRODUCT USED FOR UNKNOWN INDICATION
     Dates: start: 19940101
  5. ENSTILAR [Concomitant]
     Active Substance: BETAMETHASONE DIPROPIONATE\CALCIPOTRIENE HYDRATE
     Indication: PRODUCT USED FOR UNKNOWN INDICATION
     Dates: start: 20171022

REACTIONS (10)
  - Arthralgia [Recovering/Resolving]
  - Psoriasis [Recovered/Resolved]
  - Cellulitis [Recovered/Resolved]
  - Skin infection [Recovered/Resolved]
  - Skin bacterial infection [Recovering/Resolving]
  - Skin infection [Recovering/Resolving]
  - Blood uric acid increased [Recovering/Resolving]
  - Pain [Recovering/Resolving]
  - Pustular psoriasis [Recovering/Resolving]
  - Inflammatory marker increased [Recovered/Resolved]

NARRATIVE: CASE EVENT DATE: 20200106
